FAERS Safety Report 5638593-9 (Version None)
Quarter: 2008Q1

REPORT INFORMATION
  Report Type: 
  Country: None (occurrence: None)
  Receive Date: 20080226
  Receipt Date: 20070831
  Transmission Date: 20080703
  Serious: No
  Sender: FDA-Public Use
  Company Number: A0655280A

PATIENT
  Age: 42 Year
  Sex: Female

DRUGS (4)
  1. IMITREX [Suspect]
     Indication: MIGRAINE
     Dosage: 12MG AS REQUIRED
     Route: 058
     Dates: start: 20010101
  2. PREMARIN [Concomitant]
  3. ZYRTEC [Concomitant]
  4. TOPAMAX [Concomitant]

REACTIONS (2)
  - INJECTION SITE EXTRAVASATION [None]
  - PHARMACEUTICAL PRODUCT COMPLAINT [None]
